FAERS Safety Report 14861434 (Version 4)
Quarter: 2018Q3

REPORT INFORMATION
  Report Type: Report from Study
  Country: DK (occurrence: DK)
  Receive Date: 20180508
  Receipt Date: 20180910
  Transmission Date: 20181010
  Serious: Yes (Other)
  Sender: FDA-Public Use
  Company Number: DK-PFIZER INC-2018182648

PATIENT
  Age: 44 Year
  Sex: Male
  Weight: 65 kg

DRUGS (1)
  1. OXALIPLATIN. [Suspect]
     Active Substance: OXALIPLATIN
     Indication: METASTASES TO PERITONEUM
     Dosage: 92 MG/M2, UNK (FOUR SESSIONS OF PIPAC)
     Route: 033
     Dates: start: 201702, end: 201705

REACTIONS (1)
  - Encapsulating peritoneal sclerosis [Unknown]
